FAERS Safety Report 8132357-2 (Version None)
Quarter: 2012Q1

REPORT INFORMATION
  Report Type: 
  Country: None (occurrence: None)
  Receive Date: 20120213
  Receipt Date: 20120206
  Transmission Date: 20120608
  Serious: Yes (Hospitalization, Other)
  Sender: FDA-Public Use
  Company Number: US-BAYER-2011-054907

PATIENT
  Age: 29 Year
  Sex: Female
  Weight: 95.238 kg

DRUGS (5)
  1. PREDNISONE TAB [Concomitant]
     Dosage: 10 MG, UNK
     Route: 048
  2. PREVACID [Concomitant]
     Indication: GASTROOESOPHAGEAL REFLUX DISEASE
     Dosage: 30 MG, QD
     Dates: start: 19980101
  3. NSAID'S [Concomitant]
     Dosage: UNK UNK, PRN
  4. ACYCLOVIR [Concomitant]
     Dosage: 400 MG, PRN
  5. YAZ [Suspect]
     Indication: PREMENSTRUAL SYNDROME
     Dosage: UNK
     Route: 048
     Dates: start: 20070201, end: 20100101

REACTIONS (10)
  - DEEP VEIN THROMBOSIS [None]
  - CEREBROVASCULAR ACCIDENT [None]
  - GALLBLADDER DISORDER [None]
  - CHOLECYSTITIS CHRONIC [None]
  - DEPRESSION [None]
  - ANXIETY [None]
  - PULMONARY EMBOLISM [None]
  - PAIN [None]
  - MYOCARDIAL INFARCTION [None]
  - ANHEDONIA [None]
